FAERS Safety Report 11564597 (Version 3)
Quarter: 2015Q4

REPORT INFORMATION
  Report Type: Spontaneous
  Country: US (occurrence: US)
  Receive Date: 20150928
  Receipt Date: 20151009
  Transmission Date: 20160304
  Serious: No
  Sender: FDA-Public Use
  Company Number: ALCN2015US006127

PATIENT
  Sex: Male

DRUGS (2)
  1. SYSTANE NIGHTTIME [Suspect]
     Active Substance: MINERAL OIL\PETROLATUM
     Indication: OCULAR HYPERAEMIA
     Dosage: 1 DF, QHS
     Route: 047
     Dates: start: 20150912
  2. SYSTANE NIGHTTIME [Suspect]
     Active Substance: MINERAL OIL\PETROLATUM
     Indication: DRY EYE

REACTIONS (1)
  - Drug ineffective [Not Recovered/Not Resolved]
